FAERS Safety Report 9537759 (Version 4)
Quarter: 2013Q4

REPORT INFORMATION
  Report Type: Report from Study
  Country: DE (occurrence: DE)
  Receive Date: 20130919
  Receipt Date: 20131202
  Transmission Date: 20140711
  Serious: Yes (Hospitalization, Other)
  Sender: FDA-Public Use
  Company Number: DE-AMGEN-DEUNI2013065869

PATIENT
  Age: 72 Year
  Sex: Female

DRUGS (4)
  1. DENOSUMAB [Suspect]
     Indication: METASTASES TO BONE
     Dosage: UNK UNK, QMO
     Route: 058
     Dates: start: 20120917
  2. AROMASIN [Concomitant]
     Dosage: UNK
     Route: 048
     Dates: start: 20121115
  3. PREDNISOLONE [Concomitant]
     Dosage: 10 MG, QD
     Dates: start: 20130115
  4. ASA [Concomitant]
     Indication: HYPERTENSION

REACTIONS (1)
  - Osteonecrosis of jaw [Recovered/Resolved]
